FAERS Safety Report 21179371 (Version 3)
Quarter: 2022Q3

REPORT INFORMATION
  Report Type: Report from Study
  Country: ES (occurrence: None)
  Receive Date: 20220805
  Receipt Date: 20220906
  Transmission Date: 20221027
  Serious: Yes (Hospitalization)
  Sender: FDA-Public Use
  Company Number: ES-ROCHE-3152081

PATIENT
  Age: 50 Year
  Sex: Female
  Weight: 78 kg

DRUGS (27)
  1. TIRAGOLUMAB [Suspect]
     Active Substance: TIRAGOLUMAB
     Indication: Cervix cancer metastatic
     Dosage: ON 30/JUN/2022 AT 1:50 PM AND 2:20 PM, RECEIVED MOST RECENT DOSE OF TIRAGOLUMAB AT 600 MG PRIOR TO E
     Route: 042
     Dates: start: 20210722
  2. ATEZOLIZUMAB [Suspect]
     Active Substance: ATEZOLIZUMAB
     Indication: Cervix cancer metastatic
     Dosage: ON 30/JUN/2022 AT 3:00 AND 3:30 PM, RECEIVED MOST RECENT DOSE OF ATEZOLIZUMAB AT 1200 MG PRIOR TO EV
     Route: 041
     Dates: start: 20210722
  3. BEVACIZUMAB [Suspect]
     Active Substance: BEVACIZUMAB
     Indication: Cervix cancer metastatic
     Dosage: ON 30/JUN/2022, RECEIVED MOST RECENT DOSE OF BEVACIZUMAB AT 1080 MG PRIOR TO EVENT ONSET DATE.
     Route: 042
     Dates: start: 20210722
  4. TRAMADOL [Concomitant]
     Active Substance: TRAMADOL
     Indication: Pelvic pain
     Route: 048
     Dates: start: 20210701, end: 20220727
  5. TRAMADOL [Concomitant]
     Active Substance: TRAMADOL
     Indication: Abdominal pain upper
     Route: 058
     Dates: start: 20220728, end: 20220730
  6. TRAMADOL [Concomitant]
     Active Substance: TRAMADOL
     Route: 048
     Dates: start: 20220802
  7. IBUPROFEN [Concomitant]
     Active Substance: IBUPROFEN
     Indication: Musculoskeletal pain
     Route: 048
     Dates: start: 20210805, end: 20220727
  8. OMEPRAZOLE [Concomitant]
     Active Substance: OMEPRAZOLE
     Indication: Gastrointestinal disorder prophylaxis
     Route: 048
     Dates: start: 20210805, end: 20220727
  9. OMEPRAZOLE [Concomitant]
     Active Substance: OMEPRAZOLE
     Route: 042
     Dates: start: 20220725, end: 20220801
  10. OMEPRAZOLE [Concomitant]
     Active Substance: OMEPRAZOLE
     Route: 048
     Dates: start: 20220801
  11. TRAZODONE [Concomitant]
     Active Substance: TRAZODONE HYDROCHLORIDE
     Indication: Depression
     Route: 048
     Dates: start: 20211014
  12. SULFAMETHOXAZOLE\TRIMETHOPRIM [Concomitant]
     Active Substance: SULFAMETHOXAZOLE\TRIMETHOPRIM
     Indication: Infection prophylaxis
     Route: 048
     Dates: start: 20220407
  13. PREDNISONE [Concomitant]
     Active Substance: PREDNISONE
     Indication: Lipase increased
     Route: 048
     Dates: start: 20220527, end: 20220629
  14. PREDNISONE [Concomitant]
     Active Substance: PREDNISONE
     Route: 048
     Dates: start: 20220630, end: 20220727
  15. PREDNISONE [Concomitant]
     Active Substance: PREDNISONE
     Route: 048
  16. PREDNISONE [Concomitant]
     Active Substance: PREDNISONE
     Route: 048
  17. LEVOTHYROXINE [Concomitant]
     Active Substance: LEVOTHYROXINE
     Indication: Hypothyroidism
     Route: 048
     Dates: start: 20220610
  18. METOCLOPRAMIDE [Concomitant]
     Active Substance: METOCLOPRAMIDE
     Indication: Vomiting
     Route: 042
     Dates: start: 20220728, end: 20220728
  19. ONDANSETRON [Concomitant]
     Active Substance: ONDANSETRON
     Indication: Vomiting
     Route: 042
     Dates: start: 20220728, end: 20220728
  20. ACETAMINOPHEN [Concomitant]
     Active Substance: ACETAMINOPHEN
     Indication: Abdominal pain upper
     Route: 042
     Dates: start: 20220728, end: 20220801
  21. ACETAMINOPHEN [Concomitant]
     Active Substance: ACETAMINOPHEN
     Route: 048
     Dates: start: 20220801, end: 20220801
  22. ACETAMINOPHEN [Concomitant]
     Active Substance: ACETAMINOPHEN
     Route: 048
     Dates: start: 20220802
  23. ENOXAPARIN [Concomitant]
     Active Substance: ENOXAPARIN
     Indication: Thrombosis prophylaxis
     Route: 058
     Dates: start: 20220728, end: 20220801
  24. PREDNISONE [Concomitant]
     Active Substance: PREDNISONE
     Indication: Lipase increased
     Route: 048
     Dates: start: 20220527, end: 20220629
  25. PREDNISONE [Concomitant]
     Active Substance: PREDNISONE
     Route: 048
     Dates: start: 20220630, end: 20220727
  26. PREDNISONE [Concomitant]
     Active Substance: PREDNISONE
     Route: 048
     Dates: start: 20220802, end: 20220806
  27. MOVICOL [Concomitant]
     Active Substance: POLYETHYLENE GLYCOL 3350\POTASSIUM CHLORIDE\SODIUM BICARBONATE\SODIUM CHLORIDE
     Indication: Constipation
     Route: 048
     Dates: start: 20220802

REACTIONS (1)
  - Pancreatitis [Recovered/Resolved]

NARRATIVE: CASE EVENT DATE: 20220728
